FAERS Safety Report 5737304-6 (Version None)
Quarter: 2008Q2

REPORT INFORMATION
  Report Type: 
  Country: None (occurrence: None)
  Receive Date: 20080512
  Receipt Date: 20080512
  Transmission Date: 20081010
  Serious: Yes (Hospitalization, Other)
  Sender: FDA-Public Use
  Company Number: None

PATIENT
  Age: 71 Year
  Sex: Male
  Weight: 81.6475 kg

DRUGS (3)
  1. DIGITEK 25MG MYLAN PHARMACEUTICALS [Suspect]
     Indication: ARRHYTHMIA
     Dosage: 25 MG 1 PER DAY PO
     Route: 048
     Dates: start: 20060410, end: 20080213
  2. DIGITEK 25MG MYLAN PHARMACEUTICALS [Suspect]
     Indication: CARDIAC FAILURE
     Dosage: 25 MG 1 PER DAY PO
     Route: 048
     Dates: start: 20060410, end: 20080213
  3. DIGITEK [Concomitant]

REACTIONS (2)
  - MYOCARDIAL INFARCTION [None]
  - PHARMACEUTICAL PRODUCT COMPLAINT [None]
